FAERS Safety Report 8767104 (Version 1)
Quarter: 2012Q4

REPORT INFORMATION
  Report Type: 
  Country: FR (occurrence: FR)
  Receive Date: 20120904
  Receipt Date: 20120904
  Transmission Date: 20130627
  Serious: Yes (Hospitalization)
  Sender: FDA-Public Use
  Company Number: PHHY2012FR075202

PATIENT
  Sex: Female

DRUGS (13)
  1. NEORAL [Suspect]
     Indication: PROPHYLAXIS AGAINST TRANSPLANT REJECTION
     Dosage: 75 mg, BID
     Dates: start: 200404
  2. NEORAL [Suspect]
     Dosage: 50 mg, BID
  3. CERTICAN [Suspect]
     Indication: PROPHYLAXIS AGAINST TRANSPLANT REJECTION
     Dosage: 0.75 mg, BID
     Dates: start: 200404
  4. CERTICAN [Suspect]
     Dosage: 0.75 mg, BID
  5. TRIATEC [Suspect]
     Indication: HYPERTENSION
     Dosage: 2.5 mg, QD
  6. TRIATEC [Suspect]
     Dosage: 1.25 mg, QD
  7. SOLUPRED [Concomitant]
     Dosage: 5 mg, QD
  8. EUPRESSYL [Concomitant]
     Dosage: 60 mg, BID
  9. LEVOTHYROX [Concomitant]
     Dosage: 50 ug, QD
  10. KARDEGIC [Concomitant]
     Dosage: 160 mg, QD
  11. KARDEGIC [Concomitant]
     Dosage: 75 mg, QD
  12. TOPALGIC [Concomitant]
     Indication: GOUT
     Dates: start: 201107, end: 201108
  13. FUMAFER [Concomitant]
     Dosage: 66 mg, BID

REACTIONS (9)
  - Renal impairment [Recovered/Resolved]
  - Asthenia [Unknown]
  - Oedema [Unknown]
  - Dyspnoea exertional [Unknown]
  - Weight decreased [Unknown]
  - Palpitations [Unknown]
  - Loss of consciousness [Unknown]
  - Presyncope [Unknown]
  - Escherichia infection [Unknown]
